FAERS Safety Report 11683253 (Version 5)
Quarter: 2019Q1

REPORT INFORMATION
  Report Type: Spontaneous
  Country: US (occurrence: US)
  Receive Date: 20151029
  Receipt Date: 20190319
  Transmission Date: 20190417
  Serious: Yes (Hospitalization)
  Sender: FDA-Public Use
  Company Number: US-DSJP-DSU-2015-129235

PATIENT
  Age: 66 Year
  Sex: Male
  Weight: 81 kg

DRUGS (4)
  1. MICARDIS [Concomitant]
     Active Substance: TELMISARTAN
     Indication: PRODUCT USED FOR UNKNOWN INDICATION
     Dosage: 80/25 MG, QD
     Route: 048
     Dates: start: 20110303, end: 2012
  2. BENICAR [Suspect]
     Active Substance: OLMESARTAN MEDOXOMIL
     Indication: PRODUCT USED FOR UNKNOWN INDICATION
     Dosage: UNK
  3. AZOR [Suspect]
     Active Substance: AMLODIPINE BESYLATE\OLMESARTAN MEDOXOMIL
     Indication: HYPERTENSION
     Dosage: 40/10 MG, QD
     Route: 048
     Dates: start: 20110613, end: 20150509
  4. DILANTIN [Concomitant]
     Active Substance: PHENYTOIN
     Indication: SEIZURE
     Dosage: 100 MG, TID
     Route: 048
     Dates: start: 2010

REACTIONS (7)
  - Prerenal failure [Unknown]
  - Sprue-like enteropathy [Recovering/Resolving]
  - Dizziness [Unknown]
  - Dyspepsia [Unknown]
  - Diverticulitis [Not Recovered/Not Resolved]
  - Hepatic cyst [Unknown]
  - Haematochezia [Unknown]

NARRATIVE: CASE EVENT DATE: 20140201
